FAERS Safety Report 25551981 (Version 3)
Quarter: 2025Q3

REPORT INFORMATION
  Report Type: Spontaneous
  Country: US (occurrence: US)
  Receive Date: 20250714
  Receipt Date: 20250722
  Transmission Date: 20251021
  Serious: Yes (Other)
  Sender: AMGEN
  Company Number: US-AMGEN-USASP2025134824

PATIENT
  Age: 51 Year
  Sex: Female

DRUGS (18)
  1. TEPEZZA [Suspect]
     Active Substance: TEPROTUMUMAB-TRBW
     Indication: Toxic goitre
     Dosage: 1500 MILLIGRAM, Q3WK
     Route: 040
     Dates: start: 20221118, end: 20221118
  2. TEPEZZA [Suspect]
     Active Substance: TEPROTUMUMAB-TRBW
     Indication: Endocrine ophthalmopathy
     Dosage: 1500 MILLIGRAM, Q3WK (FOURTH DOSE)
     Route: 040
     Dates: start: 20221215, end: 20221215
  3. TEPEZZA [Suspect]
     Active Substance: TEPROTUMUMAB-TRBW
     Indication: Graves^ disease
     Dosage: 1480 MILLIGRAM, Q3WK (FIFTH DOSE)
     Route: 040
     Dates: start: 20230112, end: 20230112
  4. TEPEZZA [Suspect]
     Active Substance: TEPROTUMUMAB-TRBW
     Dosage: 1460 MILLIGRAM, Q3WK (SIXTH DOSE)
     Route: 040
     Dates: start: 20230224, end: 20230224
  5. TEPEZZA [Suspect]
     Active Substance: TEPROTUMUMAB-TRBW
     Dosage: 1480 MILLIGRAM, Q3WK (SEVENTH DOSE)
     Route: 040
     Dates: start: 20230317, end: 20230317
  6. TEPEZZA [Suspect]
     Active Substance: TEPROTUMUMAB-TRBW
     Dosage: 1480 MILLIGRAM, Q3WK (FINAL/EIGHTH INFUSION)
     Route: 040
     Dates: start: 20230413, end: 20230413
  7. ATENOLOL [Concomitant]
     Active Substance: ATENOLOL
     Route: 048
  8. ATORVASTATIN CALCIUM [Concomitant]
     Active Substance: ATORVASTATIN CALCIUM
     Route: 048
  9. CALCIUM [Concomitant]
     Active Substance: CALCIUM
     Route: 065
  10. DYMISTA [Concomitant]
     Active Substance: AZELASTINE HYDROCHLORIDE\FLUTICASONE PROPIONATE
     Route: 065
  11. FLONASE [Concomitant]
     Active Substance: FLUTICASONE PROPIONATE
     Route: 065
  12. GABAPENTIN [Concomitant]
     Active Substance: GABAPENTIN
     Route: 048
  13. PRILOSEC [Concomitant]
     Active Substance: OMEPRAZOLE MAGNESIUM
     Route: 065
  14. SINGULAIR [Concomitant]
     Active Substance: MONTELUKAST SODIUM
     Route: 065
  15. SYNTHROID [Concomitant]
     Active Substance: LEVOTHYROXINE SODIUM
     Route: 065
  16. VITAMIN D3 [Concomitant]
     Active Substance: CHOLECALCIFEROL
     Route: 048
  17. SODIUM CHLORIDE [Concomitant]
     Active Substance: SODIUM CHLORIDE
     Route: 065
  18. STERILE WATER [Concomitant]
     Active Substance: WATER
     Route: 065

REACTIONS (15)
  - Endocrine ophthalmopathy [Unknown]
  - Graves^ disease [Unknown]
  - Deafness permanent [Not Recovered/Not Resolved]
  - Pain [Unknown]
  - Impaired quality of life [Unknown]
  - Discomfort [Unknown]
  - Anxiety [Unknown]
  - Emotional distress [Unknown]
  - Tinnitus [Not Recovered/Not Resolved]
  - Blood glucose increased [Unknown]
  - Illness [Unknown]
  - Blood pressure systolic increased [Unknown]
  - Product dose omission issue [Unknown]
  - Vision blurred [Unknown]
  - Product use complaint [Unknown]

NARRATIVE: CASE EVENT DATE: 20230112
